FAERS Safety Report 8332388-3 (Version None)
Quarter: 2012Q1

REPORT INFORMATION
  Report Type: 
  Country: None (occurrence: None)
  Receive Date: 20120315
  Receipt Date: 20110308
  Transmission Date: 20120608
  Serious: No
  Sender: FDA-Public Use
  Company Number: PHHY2011US14826

PATIENT
  Age: 41 Year
  Sex: Male

DRUGS (6)
  1. LEXAPRO [Concomitant]
  2. TIZANIDINE HCL [Concomitant]
  3. GILENYA [Suspect]
     Indication: MULTIPLE SCLEROSIS
     Dosage: 0.5 MG, QD, ORAL
     Route: 048
     Dates: start: 20110126
  4. AMPYRA [Concomitant]
  5. RITALIN (METHYLPHENIDATE HYDROHCLORIDE) [Concomitant]
  6. METHYLPREDNISOLONE [Concomitant]

REACTIONS (3)
  - MUSCULOSKELETAL STIFFNESS [None]
  - HYPERTONIA [None]
  - MUSCLE SPASTICITY [None]
